FAERS Safety Report 4725273-7 (Version None)
Quarter: 2005Q3

REPORT INFORMATION
  Report Type: 
  Country: None (occurrence: None)
  Receive Date: 20050725
  Receipt Date: 20050712
  Transmission Date: 20060218
  Serious: Yes (Other)
  Sender: FDA-Public Use
  Company Number: 2005102522

PATIENT
  Age: 78 Year
  Sex: Male
  Weight: 90.7194 kg

DRUGS (14)
  1. ALPRAZOLAM [Suspect]
     Indication: DEPRESSION
     Dosage: (0.5 MG 1 IN 1D )ORAL
     Route: 048
  2. DETROL LA [Suspect]
     Indication: POLLAKIURIA
     Dosage: 4 MG (0.5 MG 1 IN 1 D) ORAL
     Route: 048
     Dates: start: 20050301
  3. ALBUTEROL (SALBTUAMOL) [Concomitant]
  4. OXYGEN (OXYGEN)` [Concomitant]
  5. ZAFIRLUKAST (ZAFIRLUKAST) [Concomitant]
  6. FLOMAX ^BOEHRINGER INGELHEIM^(TAMSULOSIN HYDROCHLORIDE) [Concomitant]
  7. HALCION [Suspect]
     Indication: SLEEP DISORDER
     Dosage: ORAL
  8. ZOLOFT [Suspect]
  9. LOVASTATIN [Concomitant]
  10. METOPROLOL TARTRATE [Concomitant]
  11. FLOMAX ^BOEHRINGER INGELHEIM^ (TAMSULOSIN HYDROCHLORIDE) [Concomitant]
  12. ACCOOLATE [Concomitant]
  13. POTASSIUM CHLORIDE [Concomitant]
  14. FUROSEMIDE [Concomitant]

REACTIONS (14)
  - ACCIDENT AT WORK [None]
  - ASTHMA [None]
  - BLADDER CANCER [None]
  - BLOOD CHOLESTEROL INCREASED [None]
  - DYSPEPSIA [None]
  - DYSURIA [None]
  - GASTRIC ULCER [None]
  - HEARING AID USER [None]
  - HEARING IMPAIRED [None]
  - NOCTURIA [None]
  - POLLAKIURIA [None]
  - POLYP [None]
  - URINARY INCONTINENCE [None]
  - WEIGHT INCREASED [None]
